FAERS Safety Report 8256448-0 (Version None)
Quarter: 2012Q2

REPORT INFORMATION
  Report Type: 
  Country: None (occurrence: None)
  Receive Date: 20120402
  Receipt Date: 20120402
  Transmission Date: 20120825
  Serious: Yes (Other)
  Sender: FDA-Public Use
  Company Number: None

PATIENT
  Age: 51 Year
  Sex: Male

DRUGS (2)
  1. RIBAVIRIN [Suspect]
     Indication: HEPATITIS C
     Dosage: 1000MG DAILY PO
     Route: 048
     Dates: start: 20120301
  2. PEGASYS [Suspect]
     Dosage: 180MCG QW SW
     Dates: start: 20120301

REACTIONS (7)
  - FATIGUE [None]
  - RHINORRHOEA [None]
  - RASH [None]
  - CHILLS [None]
  - SUICIDAL IDEATION [None]
  - TREMOR [None]
  - EYE PRURITUS [None]
